FAERS Safety Report 5663826-2 (Version None)
Quarter: 2008Q1

REPORT INFORMATION
  Report Type: 
  Country: None (occurrence: None)
  Receive Date: 20080310
  Receipt Date: 20080220
  Transmission Date: 20080703
  Serious: Yes (Hospitalization)
  Sender: FDA-Public Use
  Company Number: 2008RR-13208

PATIENT
  Age: 20 Day
  Sex: Female

DRUGS (1)
  1. ZIDOVUDINE [Suspect]
     Indication: PROPHYLAXIS
     Dosage: 20 MG/KG, QID, ORAL
     Route: 048

REACTIONS (16)
  - ANAEMIA NEONATAL [None]
  - CEREBRAL PALSY [None]
  - CEREBRAL SALT-WASTING SYNDROME [None]
  - CONVULSION NEONATAL [None]
  - DRUG TOXICITY [None]
  - FEEDING DISORDER NEONATAL [None]
  - HYPOTHERMIA NEONATAL [None]
  - HYPOTONIA NEONATAL [None]
  - LETHARGY [None]
  - MENINGOENCEPHALITIS BACTERIAL [None]
  - NEONATAL DISORDER [None]
  - NEONATAL OVERSEDATION [None]
  - NEONATAL PNEUMONIA [None]
  - NEUTROPENIA NEONATAL [None]
  - PALLOR [None]
  - SEPSIS NEONATAL [None]
